FAERS Safety Report 18468875 (Version 10)
Quarter: 2022Q2

REPORT INFORMATION
  Report Type: Report from Study
  Country: CL (occurrence: CL)
  Receive Date: 20201105
  Receipt Date: 20220411
  Transmission Date: 20220721
  Serious: Yes (Hospitalization, Disabling, Other)
  Sender: FDA-Public Use
  Company Number: CL-TAKEDA-CL202029882

PATIENT
  Age: 10 Year
  Sex: Male
  Weight: 43 kg

DRUGS (7)
  1. IDURSULFASE [Suspect]
     Active Substance: IDURSULFASE
     Indication: Mucopolysaccharidosis II
     Dosage: UNK UNK, 1/WEEK
     Route: 042
  2. IDURSULFASE [Suspect]
     Active Substance: IDURSULFASE
     Dosage: UNK UNK, 1/WEEK
     Route: 042
  3. IDURSULFASE [Suspect]
     Active Substance: IDURSULFASE
     Dosage: 0.5 MICROGRAM/KILOGRAM, 1/WEEK
     Route: 042
     Dates: start: 20200908, end: 20200908
  4. IDURSULFASE [Suspect]
     Active Substance: IDURSULFASE
     Dosage: 0.5 MICROGRAM/KILOGRAM, 1/WEEK
     Route: 042
     Dates: start: 20200928, end: 20200928
  5. IDURSULFASE [Suspect]
     Active Substance: IDURSULFASE
     Dosage: 0.5 MILLIGRAM/KILOGRAM, 3ML/6MG INJECTION,1/WEEK
     Route: 042
  6. IDURSULFASE [Suspect]
     Active Substance: IDURSULFASE
     Dosage: 0.5 MILLIGRAM/KILOGRAM
     Route: 042
  7. IDURSULFASE [Suspect]
     Active Substance: IDURSULFASE
     Dosage: 0.5 MILLIGRAM/KILOGRAM
     Route: 042

REACTIONS (23)
  - Unevaluable event [Recovered/Resolved]
  - Generalised tonic-clonic seizure [Recovered/Resolved]
  - Blindness [Recovering/Resolving]
  - Seizure [Recovering/Resolving]
  - Infusion related reaction [Recovering/Resolving]
  - Rash [Recovering/Resolving]
  - Administration site extravasation [Recovered/Resolved]
  - Infusion site induration [Unknown]
  - Nasopharyngitis [Recovering/Resolving]
  - Bronchitis [Recovering/Resolving]
  - Discouragement [Recovering/Resolving]
  - Obstructive airways disorder [Recovering/Resolving]
  - Increased upper airway secretion [Recovering/Resolving]
  - Road traffic accident [Recovering/Resolving]
  - Contusion [Recovering/Resolving]
  - Upper respiratory tract infection [Recovering/Resolving]
  - Cough [Recovering/Resolving]
  - Erythema [Unknown]
  - Nasal congestion [Recovering/Resolving]
  - Productive cough [Recovering/Resolving]
  - Tachycardia [Recovering/Resolving]
  - Oxygen saturation abnormal [Recovering/Resolving]
  - Tachypnoea [Recovering/Resolving]

NARRATIVE: CASE EVENT DATE: 20210531
